FAERS Safety Report 7092886-X (Version None)
Quarter: 2010Q4

REPORT INFORMATION
  Report Type: 
  Country: None (occurrence: None)
  Receive Date: 20101109
  Receipt Date: 20101109
  Transmission Date: 20110411
  Serious: Yes (Hospitalization)
  Sender: FDA-Public Use
  Company Number: None

PATIENT
  Age: 34 Year
  Sex: Male

DRUGS (1)
  1. SOLADEK VITAMIN D 600,000 IU INDO-PHARMA, SANTO DOMINGO [Suspect]

REACTIONS (1)
  - PNEUMOCYSTIS JIROVECI INFECTION [None]
